FAERS Safety Report 10239174 (Version 1)
Quarter: 2014Q2

REPORT INFORMATION
  Report Type: Spontaneous
  Country: US (occurrence: US)
  Receive Date: 20140616
  Receipt Date: 20140616
  Transmission Date: 20141212
  Serious: Yes (Hospitalization, Other)
  Sender: FDA-Public Use
  Company Number: US-AMGEN INC.-USASP2014043396

PATIENT
  Age: 56 Year
  Sex: Female

DRUGS (2)
  1. PROLIA [Suspect]
     Indication: OSTEOPOROSIS
     Route: 065
  2. CALCIUM GLUCONATE [Concomitant]
     Dosage: 9.4 MEQ, UNK

REACTIONS (5)
  - Confusional state [Unknown]
  - Electrocardiogram QT prolonged [Unknown]
  - Tetany [Unknown]
  - Paraesthesia oral [Unknown]
  - Hypocalcaemia [Unknown]
